FAERS Safety Report 11212099 (Version 2)
Quarter: 2015Q3

REPORT INFORMATION
  Report Type: Spontaneous
  Country: US (occurrence: US)
  Receive Date: 20150623
  Receipt Date: 20150819
  Transmission Date: 20151125
  Serious: Yes (Hospitalization, Other)
  Sender: FDA-Public Use
  Company Number: US-PFIZER INC-2015206202

PATIENT
  Age: 86 Year
  Sex: Female
  Weight: 54 kg

DRUGS (5)
  1. FOSINOPRIL [Concomitant]
     Active Substance: FOSINOPRIL
     Indication: BLOOD PRESSURE ABNORMAL
     Dosage: 20 MG, 1X/DAY
     Route: 048
  2. VITAMIN B12 [Concomitant]
     Active Substance: CYANOCOBALAMIN
     Indication: VITAMIN SUPPLEMENTATION
     Dosage: 1 DF, UNK
     Route: 048
  3. FISH OIL [Concomitant]
     Active Substance: FISH OIL
     Indication: VITAMIN SUPPLEMENTATION
     Route: 048
  4. D3 [Concomitant]
     Active Substance: 25-HYDROXYCHOLECALCIFEROL, 5-TRANS-
     Indication: VITAMIN SUPPLEMENTATION
     Dosage: UNK, 1X/DAY
     Route: 048
  5. ADVIL PM [Suspect]
     Active Substance: DIPHENHYDRAMINE CITRATE\IBUPROFEN
     Indication: INSOMNIA
     Dosage: 1/2 CAPSULE EVERY NIGHT
     Route: 048
     Dates: start: 20150401, end: 20150530

REACTIONS (4)
  - Joint injury [Not Recovered/Not Resolved]
  - Fall [Recovered/Resolved]
  - Dizziness [Recovered/Resolved]
  - Brain neoplasm [Unknown]

NARRATIVE: CASE EVENT DATE: 201504
